FAERS Safety Report 8996810 (Version 1)
Quarter: 2012Q4

REPORT INFORMATION
  Report Type: Spontaneous
  Country: US (occurrence: None)
  Receive Date: 20121228
  Receipt Date: 20121228
  Transmission Date: 20130627
  Serious: No
  Sender: FDA-Public Use
  Company Number: None

PATIENT
  Sex: Female
  Weight: 58.97 kg

DRUGS (1)
  1. CIPROFLOXACIN [Suspect]
     Dosage: 3 DAYS PRIOR INTERVENOUS
NOV 26 - 5 DAYS

REACTIONS (3)
  - Tendon disorder [None]
  - Contusion [None]
  - Oedema peripheral [None]
